FAERS Safety Report 23158613 (Version 2)
Quarter: 2024Q2

REPORT INFORMATION
  Report Type: Other
  Country: IN (occurrence: None)
  Receive Date: 20231108
  Receipt Date: 20240422
  Transmission Date: 20240716
  Serious: Yes (Death, Other)
  Sender: FDA-Public Use
  Company Number: IN-ROCHE-3402940

PATIENT
  Age: 67 Year
  Sex: Female

DRUGS (1)
  1. PERJETA [Suspect]
     Active Substance: PERTUZUMAB
     Indication: Breast cancer
     Route: 042
     Dates: start: 20210812

REACTIONS (4)
  - Death [Fatal]
  - Vesicocutaneous fistula [Unknown]
  - Haematuria [Unknown]
  - Urinary tract infection [Unknown]
